FAERS Safety Report 10236336 (Version 1)
Quarter: 2014Q1

REPORT INFORMATION
  Report Type: Spontaneous
  Country: US (occurrence: None)
  Receive Date: 20140306
  Receipt Date: 20140306
  Transmission Date: 20141002
  Serious: Yes (Other)
  Sender: FDA-Public Use
  Company Number: 163-21880-13022438(0)

PATIENT
  Age: 86 Year
  Sex: Female

DRUGS (1)
  1. REVLIMID(LENALIDOMIDE)(10 MILLIGRAM, CAPSULES) [Suspect]
     Indication: MYELODYSPLASTIC SYNDROME
     Dosage: 7.5 MG, 21 IN 28 D, PO?31-JAN-2013
     Route: 048
     Dates: start: 20130131

REACTIONS (5)
  - Hypogeusia [None]
  - Decreased appetite [None]
  - Dizziness [None]
  - Asthenia [None]
  - Dyspnoea [None]
